FAERS Safety Report 13063354 (Version 1)
Quarter: 2016Q4

REPORT INFORMATION
  Report Type: Spontaneous
  Country: US (occurrence: US)
  Receive Date: 20161227
  Receipt Date: 20161227
  Transmission Date: 20170207
  Serious: Yes (Death, Life-Threatening, Other)
  Sender: FDA-Public Use
  Company Number: US-ZYDUS-012986

PATIENT
  Age: 10 Year
  Sex: Male

DRUGS (6)
  1. METRONIDAZOLE. [Suspect]
     Active Substance: METRONIDAZOLE
     Indication: PRODUCT USED FOR UNKNOWN INDICATION
     Route: 042
  2. SODIUM CHLORIDE. [Concomitant]
     Active Substance: SODIUM CHLORIDE
     Indication: PRODUCT USED FOR UNKNOWN INDICATION
     Dosage: 1 L OF NORMAL SALINE
     Route: 065
  3. CALCIUM CHLORIDE DIHYDRATE/POTASSIUM CHLORIDE/SODIUM CHLORIDE/SODIUM LACTATE [Concomitant]
     Indication: PRODUCT USED FOR UNKNOWN INDICATION
     Route: 065
  4. ONDANSETRON [Interacting]
     Active Substance: ONDANSETRON
     Indication: GASTROENTERITIS
     Route: 042
  5. ONDANSETRON [Interacting]
     Active Substance: ONDANSETRON
     Indication: GASTROENTERITIS
     Route: 042
  6. CEFAZOLIN [Concomitant]
     Active Substance: CEFAZOLIN
     Indication: PRODUCT USED FOR UNKNOWN INDICATION
     Route: 042

REACTIONS (6)
  - Ventricular tachycardia [Unknown]
  - Unresponsive to stimuli [Unknown]
  - Cardiac arrest [Fatal]
  - Respiration abnormal [Unknown]
  - Drug interaction [Unknown]
  - Vomiting [Unknown]
